FAERS Safety Report 7275487-X (Version None)
Quarter: 2011Q1

REPORT INFORMATION
  Report Type: 
  Country: None (occurrence: None)
  Receive Date: 20110202
  Receipt Date: 20110202
  Transmission Date: 20110831
  Serious: Yes (Life-Threatening, Hospitalization)
  Sender: FDA-Public Use
  Company Number: None

PATIENT
  Sex: Female
  Weight: 113 kg

DRUGS (1)
  1. PRADAXA [Suspect]
     Indication: ATRIAL FIBRILLATION
     Dosage: 150 MG BID PO
     Route: 048
     Dates: start: 20110111, end: 20110116

REACTIONS (4)
  - RECTAL HAEMORRHAGE [None]
  - PERICARDIAL EFFUSION [None]
  - HAEMATOCHEZIA [None]
  - TOXICITY TO VARIOUS AGENTS [None]
